FAERS Safety Report 4954355-X (Version None)
Quarter: 2006Q1

REPORT INFORMATION
  Report Type: 
  Country: None (occurrence: None)
  Receive Date: 20060321
  Receipt Date: 20060214
  Transmission Date: 20060701
  Serious: No
  Sender: FDA-Public Use
  Company Number: C06-014

PATIENT
  Age: 30 Year
  Sex: Female
  Weight: 91.6266 kg

DRUGS (1)
  1. PHENTERMINE CAPSULES, USP 30 MG [Suspect]
     Indication: OBESITY
     Dosage: 1 TABLET IN THE MORNING SEVERAL YEARS

REACTIONS (1)
  - DRUG INEFFECTIVE [None]
